FAERS Safety Report 8267360-5 (Version None)
Quarter: 2012Q2

REPORT INFORMATION
  Report Type: 
  Country: None (occurrence: None)
  Receive Date: 20120409
  Receipt Date: 20120330
  Transmission Date: 20120825
  Serious: Yes (Hospitalization, Other)
  Sender: FDA-Public Use
  Company Number: PHHY2012FR019104

PATIENT
  Sex: Female

DRUGS (10)
  1. ZOLPIDEM TARTRATE [Concomitant]
     Dosage: UNK
  2. FOLIC ACID [Concomitant]
     Dosage: UNK
  3. UMULINE [Concomitant]
  4. AMLODIPINE BESYLATE [Concomitant]
     Dosage: 10 MG, UNK
  5. FURADANTIN [Suspect]
     Dosage: 4 TO 5 DAYS PER MONTH
     Route: 048
     Dates: end: 20111013
  6. VOLTAREN [Suspect]
     Dosage: UNK
     Route: 048
     Dates: start: 20111004, end: 20111013
  7. EUPRESSYL [Concomitant]
     Dosage: 60 MG, UNK
  8. NOVORAPID [Concomitant]
  9. LIPANOR [Suspect]
     Dosage: UNK
     Route: 048
     Dates: end: 20111013
  10. BISOPROLOL FUMARATE [Concomitant]
     Dosage: 10 MG, UNK

REACTIONS (8)
  - HEPATIC FIBROSIS [None]
  - JAUNDICE [None]
  - HEPATOTOXICITY [None]
  - CHOLELITHIASIS [None]
  - ABDOMINAL PAIN [None]
  - EPSTEIN-BARR VIRUS ANTIBODY POSITIVE [None]
  - EPSTEIN-BARR VIRUS TEST POSITIVE [None]
  - VOMITING [None]
